FAERS Safety Report 12158495 (Version 1)
Quarter: 2016Q1

REPORT INFORMATION
  Report Type: Spontaneous
  Country: US (occurrence: US)
  Receive Date: 20160308
  Receipt Date: 20160308
  Transmission Date: 20160526
  Serious: No
  Sender: FDA-Public Use
  Company Number: US-JNJFOC-20160218067

PATIENT
  Age: 5 Year
  Sex: Male
  Weight: 20.87 kg

DRUGS (3)
  1. CHILDRENS MOTRIN [Suspect]
     Active Substance: IBUPROFEN
     Indication: PYREXIA
     Route: 048
     Dates: start: 20160214
  2. CHILDRENS MOTRIN [Suspect]
     Active Substance: IBUPROFEN
     Route: 048
  3. INFANTS TYLENOL CHERRY [Concomitant]
     Indication: PYREXIA
     Dosage: { 1/4 TEASPOON
     Route: 065
     Dates: start: 20160214

REACTIONS (3)
  - Inappropriate schedule of drug administration [Unknown]
  - Drug ineffective [Unknown]
  - Product expiration date issue [Unknown]
